FAERS Safety Report 5703649-9 (Version None)
Quarter: 2008Q2

REPORT INFORMATION
  Report Type: 
  Country: None (occurrence: None)
  Receive Date: 20080411
  Receipt Date: 20080402
  Transmission Date: 20081010
  Serious: Yes (Hospitalization)
  Sender: FDA-Public Use
  Company Number: BR-ABBOTT-07P-020-0431152-00

PATIENT
  Sex: Female

DRUGS (3)
  1. SYNTHROID [Suspect]
     Indication: HYPOTHYROIDISM
     Route: 048
     Dates: start: 20061201, end: 20080223
  2. SYNTHROID [Suspect]
     Route: 048
     Dates: start: 20080223
  3. MULTI-VITAMINS [Concomitant]
     Indication: DRUG USE FOR UNKNOWN INDICATION

REACTIONS (10)
  - ASTHENIA [None]
  - FAECES HARD [None]
  - FATIGUE [None]
  - FLATULENCE [None]
  - LYMPHOCYTE COUNT INCREASED [None]
  - PLATELET COUNT INCREASED [None]
  - POOR QUALITY SLEEP [None]
  - UTERINE CONTRACTIONS ABNORMAL [None]
  - UTERINE DISORDER [None]
  - WHITE BLOOD CELL COUNT INCREASED [None]
